FAERS Safety Report 18962693 (Version 3)
Quarter: 2021Q1

REPORT INFORMATION
  Report Type: Spontaneous
  Country: US (occurrence: US)
  Receive Date: 20210303
  Receipt Date: 20210319
  Transmission Date: 20210420
  Serious: No
  Sender: FDA-Public Use
  Company Number: US-GLAXOSMITHKLINE-US2021AMR054906

PATIENT
  Sex: Female

DRUGS (2)
  1. ZEJULA [Suspect]
     Active Substance: NIRAPARIB
     Indication: OVARIAN CANCER
     Dosage: 200 MG, QD
     Dates: start: 20210208
  2. ZEJULA [Suspect]
     Active Substance: NIRAPARIB
     Dosage: 1 DF

REACTIONS (2)
  - Constipation [Recovering/Resolving]
  - Blood pressure increased [Unknown]
